FAERS Safety Report 14977875 (Version 2)
Quarter: 2018Q2

REPORT INFORMATION
  Report Type: Spontaneous
  Country: JP (occurrence: JP)
  Receive Date: 20180606
  Receipt Date: 20180616
  Transmission Date: 20180711
  Serious: Yes (Hospitalization)
  Sender: FDA-Public Use
  Company Number: JP-ABBVIE-18K-087-2377863-00

PATIENT

DRUGS (1)
  1. MAVIRET [Suspect]
     Active Substance: GLECAPREVIR\PIBRENTASVIR
     Indication: CHRONIC HEPATITIS C
     Route: 048

REACTIONS (1)
  - Ileus [Unknown]
